FAERS Safety Report 8595865-6 (Version None)
Quarter: 2012Q3

REPORT INFORMATION
  Report Type: 
  Country: None (occurrence: None)
  Receive Date: 20120815
  Receipt Date: 19900307
  Transmission Date: 20120928
  Serious: Yes (Hospitalization)
  Sender: FDA-Public Use
  Company Number: US-ROCHE-1098707

PATIENT
  Age: 47 Year
  Sex: Male

DRUGS (3)
  1. ACTIVASE [Suspect]
  2. ACTIVASE [Suspect]
  3. ACTIVASE [Suspect]
     Indication: ACUTE MYOCARDIAL INFARCTION

REACTIONS (3)
  - SUPRAVENTRICULAR EXTRASYSTOLES [None]
  - BLOOD CREATINE PHOSPHOKINASE INCREASED [None]
  - SUPRAVENTRICULAR TACHYCARDIA [None]
